FAERS Safety Report 6516098-0 (Version None)
Quarter: 2009Q4

REPORT INFORMATION
  Report Type: 
  Country: None (occurrence: None)
  Receive Date: 20091217
  Receipt Date: 20080609
  Transmission Date: 20100525
  Serious: Yes (Other)
  Sender: FDA-Public Use
  Company Number: 2008-00604FE

PATIENT
  Sex: Female
  Weight: 59.8748 kg

DRUGS (10)
  1. MENOPUR [Suspect]
     Indication: IN VITRO FERTILISATION
     Dates: start: 20070401, end: 20070501
  2. CHORIONIC GONADTROPIN [Suspect]
     Indication: INFERTILITY
     Dosage: (INTRAMUSCULAR)
     Route: 030
     Dates: end: 20070501
  3. CHORIONIC GONADTROPIN [Suspect]
     Indication: INFERTILITY
     Dosage: (INTRAMUSCULAR)
     Route: 030
     Dates: end: 20080404
  4. PROGESTERONE [Suspect]
     Indication: DRUG USE FOR UNKNOWN INDICATION
     Dosage: (2 ML)
     Dates: start: 20070101, end: 20070701
  5. GONAL-F [Suspect]
     Indication: ASSISTED FERTILISATION
     Dates: start: 20070401, end: 20070501
  6. GONAL-F [Suspect]
     Indication: ASSISTED FERTILISATION
     Dates: end: 20080101
  7. LUPRON [Suspect]
     Indication: IN VITRO FERTILISATION
     Dates: start: 20070401, end: 20070501
  8. ESTRACE [Suspect]
     Indication: DRUG USE FOR UNKNOWN INDICATION
     Dosage: (ORAL)
     Route: 048
     Dates: start: 20070101, end: 20070701
  9. ASPIRIN [Concomitant]
  10. LOVENOX [Concomitant]

REACTIONS (3)
  - ABORTION SPONTANEOUS [None]
  - BREAST TENDERNESS [None]
  - CYST [None]
